FAERS Safety Report 11077643 (Version 1)
Quarter: 2015Q2

REPORT INFORMATION
  Report Type: Spontaneous
  Country: CN (occurrence: CN)
  Receive Date: 20150430
  Receipt Date: 20150430
  Transmission Date: 20150821
  Serious: Yes (Hospitalization, Other)
  Sender: FDA-Public Use
  Company Number: CN-MACLEODS PHARMACEUTICALS US LTD-MAC2015001720

PATIENT

DRUGS (2)
  1. AMOXICILLIN SODIUM/SULBACTAM SODIUM [Concomitant]
     Indication: PRODUCT USED FOR UNKNOWN INDICATION
     Dosage: 4.5 G, BID, ON THE THIRD DAY
     Route: 065
  2. LEVOFLOXACIN 500 MG TABLETS [Suspect]
     Active Substance: LEVOFLOXACIN
     Indication: PRODUCT USED FOR UNKNOWN INDICATION
     Dosage: 500 MG, PER DAY
     Route: 048

REACTIONS (3)
  - Hydronephrosis [Recovered/Resolved]
  - Urine output decreased [None]
  - Crystal nephropathy [Recovered/Resolved]
